FAERS Safety Report 8265626-6 (Version None)
Quarter: 2012Q2

REPORT INFORMATION
  Report Type: 
  Country: None (occurrence: None)
  Receive Date: 20120406
  Receipt Date: 20120323
  Transmission Date: 20120825
  Serious: Yes (Other)
  Sender: FDA-Public Use
  Company Number: CHPA2012US005762

PATIENT
  Age: 77 Year
  Sex: Female

DRUGS (2)
  1. DESENEX ANTIFUNGAL SPRAY POWDER [Suspect]
     Indication: ERYTHEMA
     Dosage: 2 SPRAYS
     Route: 061
     Dates: start: 20111101, end: 20111201
  2. DESENEX ANTIFUNGAL SPRAY POWDER [Suspect]
     Dosage: 2 SPRAYS, BID PRN
     Route: 061

REACTIONS (4)
  - HYPERTENSION [None]
  - DRUG ADMINISTERED AT INAPPROPRIATE SITE [None]
  - THERAPEUTIC RESPONSE UNEXPECTED [None]
  - OFF LABEL USE [None]
